FAERS Safety Report 25498001 (Version 1)
Quarter: 2025Q3

REPORT INFORMATION
  Report Type: Spontaneous
  Country: CN (occurrence: CN)
  Receive Date: 20250701
  Receipt Date: 20250701
  Transmission Date: 20251021
  Serious: Yes (Other)
  Sender: ROCHE
  Company Number: CN-ROCHE-10000322088

PATIENT

DRUGS (1)
  1. ROZLYTREK [Suspect]
     Active Substance: ENTRECTINIB
     Indication: Lung neoplasm malignant
     Route: 048

REACTIONS (4)
  - Ventricular extrasystoles [Recovering/Resolving]
  - QRS axis abnormal [Recovering/Resolving]
  - Electrocardiogram ST-T change [Recovering/Resolving]
  - Hyperpyrexia [Recovering/Resolving]
